FAERS Safety Report 20842929 (Version 1)
Quarter: 2022Q2

REPORT INFORMATION
  Report Type: Spontaneous
  Country: US (occurrence: US)
  Receive Date: 20220518
  Receipt Date: 20220518
  Transmission Date: 20220721
  Serious: Yes (Hospitalization)
  Sender: FDA-Public Use
  Company Number: US-SUN PHARMACEUTICAL INDUSTRIES LTD-2022R1-336804

PATIENT
  Age: 75 Year
  Sex: Male

DRUGS (1)
  1. MINOCYCLINE [Suspect]
     Active Substance: MINOCYCLINE HYDROCHLORIDE
     Indication: Antibiotic therapy
     Dosage: 100 MILLIGRAM, 1DOSE/12HOUR, FOR 4 YEARS
     Route: 048

REACTIONS (2)
  - Condition aggravated [Unknown]
  - Pigmentation disorder [Not Recovered/Not Resolved]
